FAERS Safety Report 9470890 (Version 1)
Quarter: 2013Q3

REPORT INFORMATION
  Report Type: Spontaneous
  Country: US (occurrence: US)
  Receive Date: 20130822
  Receipt Date: 20130822
  Transmission Date: 20140515
  Serious: No
  Sender: FDA-Public Use
  Company Number: US-PFIZER INC-2013239025

PATIENT
  Sex: Female

DRUGS (2)
  1. CALAN [Suspect]
     Dosage: 240 MG, 1X/DAY
     Route: 048
     Dates: end: 201209
  2. VERAPAMIL [Concomitant]
     Indication: CARDIAC DISORDER
     Dosage: 300 MG, UNK
     Route: 048

REACTIONS (2)
  - Drug ineffective [Unknown]
  - Heart rate irregular [Unknown]
